FAERS Safety Report 5390353-2 (Version None)
Quarter: 2007Q3

REPORT INFORMATION
  Report Type: 
  Country: None (occurrence: None)
  Receive Date: 20070718
  Receipt Date: 20070709
  Transmission Date: 20080115
  Serious: Yes (Other)
  Sender: FDA-Public Use
  Company Number: JP-JNJFOC-20070605562

PATIENT
  Age: 53 Year
  Sex: Male

DRUGS (2)
  1. ITRACONAZOLE [Suspect]
     Indication: ASPERGILLOSIS
     Route: 048
  2. BEPRIDIL HYDROCHLORIDE [Suspect]
     Indication: ATRIAL TACHYCARDIA
     Route: 048

REACTIONS (2)
  - CARDIAC ARREST [None]
  - ELECTROCARDIOGRAM QT PROLONGED [None]
